FAERS Safety Report 4300889-0 (Version None)
Quarter: 2004Q1

REPORT INFORMATION
  Report Type: 
  Country: None (occurrence: None)
  Receive Date: 20040220
  Receipt Date: 20040213
  Transmission Date: 20041129
  Serious: Yes (Death, Life-Threatening)
  Sender: FDA-Public Use
  Company Number: WAES 0402DNK00024

PATIENT
  Age: 89 Year
  Sex: Female

DRUGS (4)
  1. ACETAMINOPHEN [Concomitant]
  2. FLUNITRAZEPAM [Concomitant]
  3. METOPROLOL TARTRATE [Concomitant]
  4. VIOXX [Suspect]
     Route: 048
     Dates: end: 20040203

REACTIONS (1)
  - UPPER GASTROINTESTINAL HAEMORRHAGE [None]
